FAERS Safety Report 4318990-4 (Version None)
Quarter: 2004Q1

REPORT INFORMATION
  Report Type: 
  Country: None (occurrence: None)
  Receive Date: 20040317
  Receipt Date: 20040317
  Transmission Date: 20041129
  Serious: Yes (Hospitalization)
  Sender: FDA-Public Use
  Company Number: None

PATIENT
  Age: 23 Year
  Sex: Male

DRUGS (6)
  1. SULFAMETHOXAZOLE + TRIMETHOPRIM [Suspect]
  2. PREDNISONE [Concomitant]
  3. RANITIDINE HYDROCHLORIDE [Concomitant]
  4. CALCIUM [Concomitant]
  5. HYDROXYZINE [Concomitant]
  6. TRIAMCINOLONE(TOPICAL) [Concomitant]

REACTIONS (5)
  - ERYTHEMA [None]
  - HYPERSENSITIVITY [None]
  - INFECTION [None]
  - PYREXIA [None]
  - SKIN DESQUAMATION [None]
